FAERS Safety Report 6243984-1 (Version None)
Quarter: 2009Q2

REPORT INFORMATION
  Report Type: 
  Country: None (occurrence: None)
  Receive Date: 20090623
  Receipt Date: 20090611
  Transmission Date: 20091009
  Serious: Yes (Other)
  Sender: FDA-Public Use
  Company Number: 2009MB000041

PATIENT
  Age: 15 Year
  Sex: Female
  Weight: 58.9676 kg

DRUGS (2)
  1. MOXATAG [Suspect]
     Indication: PHARYNGITIS
     Dosage: 775 MG; QD; PO
     Route: 048
     Dates: start: 20090512, end: 20090518
  2. MOXATAG [Suspect]
     Indication: PYREXIA
     Dosage: 775 MG; QD; PO
     Route: 048
     Dates: start: 20090512, end: 20090518

REACTIONS (7)
  - ALANINE AMINOTRANSFERASE INCREASED [None]
  - ASPARTATE AMINOTRANSFERASE INCREASED [None]
  - BLOOD ALKALINE PHOSPHATASE INCREASED [None]
  - EPSTEIN-BARR VIRUS ANTIBODY POSITIVE [None]
  - LIVER FUNCTION TEST ABNORMAL [None]
  - PAIN [None]
  - SPLENOMEGALY [None]
